FAERS Safety Report 6621679-X (Version None)
Quarter: 2010Q1

REPORT INFORMATION
  Report Type: 
  Country: None (occurrence: None)
  Receive Date: 20100223
  Receipt Date: 20100105
  Transmission Date: 20100710
  Serious: Yes (Other)
  Sender: FDA-Public Use
  Company Number: 004011

PATIENT
  Sex: Male
  Weight: 88.9 kg

DRUGS (5)
  1. CIMZIA [Suspect]
     Indication: COLITIS ULCERATIVE
     Dosage: (400 MG Q 2-WEEKS FOR 3 DOSES SUBCUTANEOUS); SEE IMAGE
     Route: 058
     Dates: start: 20090901, end: 20091001
  2. CIMZIA [Suspect]
     Indication: COLITIS ULCERATIVE
     Dosage: (400 MG Q 2-WEEKS FOR 3 DOSES SUBCUTANEOUS); SEE IMAGE
     Route: 058
     Dates: start: 20091001
  3. ALLEGRA D 24 HOUR [Concomitant]
  4. SINGULAIR [Concomitant]
  5. XYZAL [Concomitant]

REACTIONS (2)
  - OFF LABEL USE [None]
  - WRONG TECHNIQUE IN DRUG USAGE PROCESS [None]
